FAERS Safety Report 18191600 (Version 1)
Quarter: 2020Q3

REPORT INFORMATION
  Report Type: Spontaneous
  Country: US (occurrence: US)
  Receive Date: 20200825
  Receipt Date: 20200825
  Transmission Date: 20201103
  Serious: No
  Sender: FDA-Public Use
  Company Number: US-CIPLA LTD.-2020US03322

PATIENT

DRUGS (1)
  1. DICLOFENAC [Suspect]
     Active Substance: DICLOFENAC
     Indication: BONE PAIN
     Dosage: UNK, QID
     Route: 061
     Dates: end: 20200505

REACTIONS (3)
  - Product use in unapproved indication [Unknown]
  - Therapeutic product effect incomplete [Unknown]
  - Off label use [Unknown]
